FAERS Safety Report 4939333-9 (Version None)
Quarter: 2006Q1

REPORT INFORMATION
  Report Type: 
  Country: None (occurrence: None)
  Receive Date: 20060306
  Receipt Date: 20060222
  Transmission Date: 20060701
  Serious: Yes (Death, Other)
  Sender: FDA-Public Use
  Company Number: 2006BH003817

PATIENT
  Sex: Male

DRUGS (1)
  1. DEXAMETHASONE [Suspect]
     Indication: MALIGNANT NEOPLASM OF SPINAL CORD

REACTIONS (1)
  - STAPHYLOCOCCAL SEPSIS [None]
